FAERS Safety Report 7281685-1 (Version None)
Quarter: 2011Q1

REPORT INFORMATION
  Report Type: 
  Country: None (occurrence: None)
  Receive Date: 20110208
  Receipt Date: 20110203
  Transmission Date: 20110831
  Serious: Yes (Death)
  Sender: FDA-Public Use
  Company Number: US-PURDUE-USA-2010-0056529

PATIENT
  Sex: Male

DRUGS (3)
  1. OXYCONTIN [Suspect]
     Indication: EHLERS-DANLOS SYNDROME
  2. OXYCONTIN [Suspect]
     Indication: FIBROMYALGIA
  3. OXYCONTIN [Suspect]
     Indication: PAIN
     Dosage: 60 MG, BID
     Dates: start: 20100706, end: 20101122

REACTIONS (3)
  - DEATH [None]
  - DRUG INTOLERANCE [None]
  - PAIN [None]
